FAERS Safety Report 5596484-6 (Version None)
Quarter: 2008Q1

REPORT INFORMATION
  Report Type: 
  Country: None (occurrence: None)
  Receive Date: 20080118
  Receipt Date: 20080109
  Transmission Date: 20080703
  Serious: Yes (Other)
  Sender: FDA-Public Use
  Company Number: US-PFIZER INC-2007101498

PATIENT
  Sex: Female
  Weight: 78 kg

DRUGS (2)
  1. DILANTIN [Suspect]
     Indication: EPILEPSY
     Route: 048
  2. PHENOBARBITAL TAB [Concomitant]

REACTIONS (8)
  - BLOOD ALBUMIN DECREASED [None]
  - BONE PAIN [None]
  - CONVULSION [None]
  - GAIT DISTURBANCE [None]
  - HYPOCALCAEMIA [None]
  - NEPHROTIC SYNDROME [None]
  - OSTEOPOROSIS [None]
  - THERAPEUTIC AGENT TOXICITY [None]
